FAERS Safety Report 9220073 (Version 1)
Quarter: 2013Q1

REPORT INFORMATION
  Report Type: Spontaneous
  Country: US (occurrence: US)
  Receive Date: 20120830
  Receipt Date: 20120830
  Transmission Date: 20140127
  Serious: Yes (Other)
  Sender: FDA-Public Use
  Company Number: US008630

PATIENT
  Sex: Female

DRUGS (2)
  1. GABITRIL (TIAGABINE) [Suspect]
     Indication: CONVULSION
     Route: 048
     Dates: start: 1998, end: 1998
  2. DEPAKOTE [Concomitant]

REACTIONS (2)
  - Status epilepticus [None]
  - Hyperammonaemia [None]
